FAERS Safety Report 23867172 (Version 1)
Quarter: 2024Q2

REPORT INFORMATION
  Report Type: Spontaneous
  Country: US (occurrence: US)
  Receive Date: 20240517
  Receipt Date: 20240517
  Transmission Date: 20240716
  Serious: No
  Sender: FDA-Public Use
  Company Number: US-GSK-US2024059075

PATIENT
  Age: 7 Decade
  Sex: Female

DRUGS (1)
  1. OJJAARA [Suspect]
     Active Substance: MOMELOTINIB DIHYDROCHLORIDE MONOHYDRATE
     Indication: Myelofibrosis
     Dosage: UNK
     Dates: start: 20240101, end: 202404

REACTIONS (1)
  - Haemoglobin decreased [Recovered/Resolved]
